FAERS Safety Report 6231961-6 (Version None)
Quarter: 2009Q2

REPORT INFORMATION
  Report Type: 
  Country: None (occurrence: None)
  Receive Date: 20090616
  Receipt Date: 20090119
  Transmission Date: 20091009
  Serious: No
  Sender: FDA-Public Use
  Company Number: US-ABBOTT-09P-163-0498611-00

PATIENT
  Sex: Female
  Weight: 57.204 kg

DRUGS (1)
  1. GENGRAF [Suspect]
     Indication: RHEUMATOID ARTHRITIS
     Dates: start: 20081027, end: 20081030

REACTIONS (3)
  - ERYTHEMA [None]
  - RASH GENERALISED [None]
  - RASH PAPULAR [None]
